FAERS Safety Report 8229700-2 (Version None)
Quarter: 2012Q1

REPORT INFORMATION
  Report Type: 
  Country: None (occurrence: None)
  Receive Date: 20120322
  Receipt Date: 20120313
  Transmission Date: 20120608
  Serious: Yes (Other)
  Sender: FDA-Public Use
  Company Number: US-ASTRAZENECA-2011SE73882

PATIENT
  Age: 38 Year
  Sex: Female
  Weight: 84.4 kg

DRUGS (9)
  1. NEXIUM [Suspect]
     Indication: GASTROOESOPHAGEAL REFLUX DISEASE
     Route: 048
     Dates: start: 20110414
  2. TOPROL-XL [Suspect]
     Route: 048
  3. TOPROL-XL [Suspect]
     Route: 048
  4. WELLBUTRIN [Concomitant]
  5. ANAFRANIL [Concomitant]
     Indication: OBSESSIVE-COMPULSIVE DISORDER
  6. LEVOTHYROXINE SODIUM [Concomitant]
     Indication: HYPOTHYROIDISM
  7. TOPROL-XL [Suspect]
     Indication: SUPRAVENTRICULAR TACHYCARDIA
     Route: 048
     Dates: start: 20111121
  8. SYNTHROID [Concomitant]
  9. I-131 [Concomitant]
     Indication: BASEDOW'S DISEASE

REACTIONS (2)
  - OFF LABEL USE [None]
  - SINUS TACHYCARDIA [None]
